FAERS Safety Report 9371896 (Version 1)
Quarter: 2013Q2

REPORT INFORMATION
  Report Type: Report from Study
  Country: US (occurrence: US)
  Receive Date: 20130627
  Receipt Date: 20130627
  Transmission Date: 20140414
  Serious: Yes (Other)
  Sender: FDA-Public Use
  Company Number: US-MYLANLABS-2012S1009721

PATIENT
  Age: 55 Year
  Sex: Male
  Weight: 108.41 kg

DRUGS (7)
  1. CLOZAPINE TABLETS [Suspect]
     Indication: SCHIZOPHRENIA
     Dosage: 1 TABLET IN MORNING, 1/2 TABLET IN AFTERNOON, 2 TABLETS AT HS
     Route: 048
     Dates: start: 19960605, end: 20120508
  2. KLONOPIN [Concomitant]
     Indication: ANXIETY
  3. CYMBALTA [Concomitant]
     Indication: ANXIETY
  4. COGENTIN [Concomitant]
     Indication: RESTLESSNESS
     Dosage: 1MG AM 2MG PM
  5. LUNESTA [Concomitant]
     Indication: INSOMNIA
  6. XANAX [Concomitant]
     Indication: ANXIETY
  7. METFORMIN [Concomitant]
     Indication: DIABETES MELLITUS

REACTIONS (2)
  - Granulocytopenia [Not Recovered/Not Resolved]
  - Leukopenia [Not Recovered/Not Resolved]
